FAERS Safety Report 5897344-3 (Version None)
Quarter: 2008Q3

REPORT INFORMATION
  Report Type: 
  Country: None (occurrence: None)
  Receive Date: 20080925
  Receipt Date: 20080109
  Transmission Date: 20090109
  Serious: No
  Sender: FDA-Public Use
  Company Number: A0702182A

PATIENT
  Sex: Male

DRUGS (5)
  1. EPZICOM [Suspect]
     Indication: DRUG USE FOR UNKNOWN INDICATION
     Dosage: 1TAB PER DAY
     Route: 048
     Dates: start: 20080103
  2. UNKNOWN MEDICATION [Concomitant]
  3. NORVIR [Concomitant]
  4. PAIN MEDICATIONS [Concomitant]
  5. ANTIBIOTIC [Concomitant]

REACTIONS (2)
  - GASTROINTESTINAL DISORDER [None]
  - HYPERSENSITIVITY [None]
